FAERS Safety Report 8452716-8 (Version None)
Quarter: 2012Q2

REPORT INFORMATION
  Report Type: 
  Country: None (occurrence: None)
  Receive Date: 20120620
  Receipt Date: 20120612
  Transmission Date: 20120825
  Serious: Yes (Hospitalization)
  Sender: FDA-Public Use
  Company Number: US-ABBOTT-11P-163-0721946-00

PATIENT
  Sex: Male
  Weight: 74.456 kg

DRUGS (8)
  1. REMICADE [Suspect]
     Indication: PRODUCT USED FOR UNKNOWN INDICATION
  2. HUMIRA [Suspect]
     Indication: CROHN'S DISEASE
     Route: 058
     Dates: start: 20101001, end: 20101201
  3. VICODIN [Concomitant]
     Indication: PAIN
     Dosage: 1-2 TABS AS NEEDED
  4. HUMIRA [Suspect]
     Route: 058
     Dates: start: 20110201
  5. HUMIRA [Suspect]
     Route: 058
     Dates: start: 20120605
  6. ATIVAN [Concomitant]
     Indication: PRODUCT USED FOR UNKNOWN INDICATION
  7. LORAZEPAM [Concomitant]
     Indication: PRODUCT USED FOR UNKNOWN INDICATION
  8. HYDROCODONE [Concomitant]
     Indication: PRODUCT USED FOR UNKNOWN INDICATION

REACTIONS (18)
  - HAEMATOMA [None]
  - NASAL CONGESTION [None]
  - CROHN'S DISEASE [None]
  - ABDOMINAL PAIN [None]
  - DECREASED APPETITE [None]
  - LARGE INTESTINAL ULCER [None]
  - NASOPHARYNGITIS [None]
  - GASTROINTESTINAL DISORDER [None]
  - SCAR [None]
  - WOUND [None]
  - INCISIONAL HERNIA [None]
  - INCORRECT DOSE ADMINISTERED [None]
  - ABSCESS INTESTINAL [None]
  - SKIN TIGHTNESS [None]
  - NAUSEA [None]
  - ILEITIS [None]
  - VOMITING [None]
  - OFF LABEL USE [None]
